FAERS Safety Report 18964170 (Version 1)
Quarter: 2021Q1

REPORT INFORMATION
  Report Type: Spontaneous
  Country: US (occurrence: US)
  Receive Date: 20210303
  Receipt Date: 20210303
  Transmission Date: 20210420
  Serious: No
  Sender: FDA-Public Use
  Company Number: US-AMNEAL PHARMACEUTICALS-2020-AMRX-02263

PATIENT
  Age: 71 Year
  Sex: Male

DRUGS (4)
  1. RYTARY [Suspect]
     Active Substance: CARBIDOPA\LEVODOPA
     Indication: PARKINSON^S DISEASE
     Dosage: 1 CAPSULES, 5 /DAY
     Route: 048
     Dates: start: 20200628, end: 202007
  2. RYTARY [Suspect]
     Active Substance: CARBIDOPA\LEVODOPA
     Dosage: 2 CAPSULES, 4X/DAY
     Route: 048
     Dates: start: 20200705, end: 20200705
  3. RYTARY [Suspect]
     Active Substance: CARBIDOPA\LEVODOPA
     Dosage: 12 CAPSULES, DAILY (2 CAP AT 5AM, 3 CAP AT 9AM, 3 CAPS AT 1PM, 2 CAPS AT 5PM AND 2 CAPS AT 9PM)
     Route: 048
     Dates: start: 20200720, end: 20200731
  4. RYTARY [Suspect]
     Active Substance: CARBIDOPA\LEVODOPA
     Dosage: 2 CAPSULES, 5X/DAY
     Route: 048
     Dates: start: 20200706, end: 202007

REACTIONS (2)
  - Drug ineffective [Unknown]
  - On and off phenomenon [Unknown]

NARRATIVE: CASE EVENT DATE: 20200628
